FAERS Safety Report 10055889 (Version 1)
Quarter: 2014Q2

REPORT INFORMATION
  Report Type: Spontaneous
  Country: US (occurrence: None)
  Receive Date: 20140402
  Receipt Date: 20140402
  Transmission Date: 20141212
  Serious: Yes (Other)
  Sender: FDA-Public Use
  Company Number: None

PATIENT
  Age: 28 Year
  Sex: Male
  Weight: 84 kg

DRUGS (1)
  1. PRAZOSIN [Suspect]
     Indication: NIGHTMARE
     Route: 048
     Dates: start: 20121109, end: 20131024

REACTIONS (1)
  - Aggression [None]
